FAERS Safety Report 5222514-7 (Version None)
Quarter: 2007Q1

REPORT INFORMATION
  Report Type: 
  Country: None (occurrence: None)
  Receive Date: 20070129
  Receipt Date: 20070116
  Transmission Date: 20070707
  Serious: Yes (Hospitalization, Other)
  Sender: FDA-Public Use
  Company Number: NO-BRISTOL-MYERS SQUIBB COMPANY-13648969

PATIENT
  Age: 81 Year
  Sex: Female

DRUGS (4)
  1. METFORMIN HCL [Suspect]
  2. LISINOPRIL [Suspect]
  3. GLIMEPIRIDE [Concomitant]
  4. HYDROCHLOROTHIAZIDE [Concomitant]

REACTIONS (3)
  - HAEMATEMESIS [None]
  - LACTIC ACIDOSIS [None]
  - RECTAL HAEMORRHAGE [None]
